FAERS Safety Report 20997695 (Version 1)
Quarter: 2022Q2

REPORT INFORMATION
  Report Type: Spontaneous
  Country: US (occurrence: None)
  Receive Date: 20220622
  Receipt Date: 20220622
  Transmission Date: 20220721
  Serious: Yes (Other)
  Sender: FDA-Public Use
  Company Number: None

PATIENT
  Age: 55 Year
  Sex: Female
  Weight: 63 kg

DRUGS (5)
  1. PAXLOVID [Suspect]
     Active Substance: NIRMATRELVIR\RITONAVIR
     Indication: COVID-19
     Dosage: OTHER QUANTITY : 10 TABLET(S);?FREQUENCY : TWICE A DAY;?
     Route: 048
     Dates: start: 20220528, end: 20220602
  2. vitafusion women^s multi vitamin (daily) [Concomitant]
  3. NatureMade Vitamin C Gummies 250mg (daily [Concomitant]
  4. Tylenol (only on 5/28+59) [Concomitant]
  5. Ibuprofen Gel (only on 5/28+59) [Concomitant]

REACTIONS (4)
  - Erythema [None]
  - Hyperaesthesia [None]
  - Skin discolouration [None]
  - Skin warm [None]

NARRATIVE: CASE EVENT DATE: 20220531
